FAERS Safety Report 10997520 (Version 1)
Quarter: 2015Q2

REPORT INFORMATION
  Report Type: Report from Study
  Country: BR (occurrence: BR)
  Receive Date: 20150408
  Receipt Date: 20150408
  Transmission Date: 20150821
  Serious: Yes (Hospitalization)
  Sender: FDA-Public Use
  Company Number: BR-SA-2015SA044099

PATIENT
  Age: 85 Year
  Sex: Female

DRUGS (5)
  1. LANTUS SOLOSTAR [Suspect]
     Active Substance: INSULIN GLARGINE
     Indication: TYPE 2 DIABETES MELLITUS
     Dosage: STARTED SINCE MORE THAN 3 MONTHS
     Route: 065
  2. NOVORAPID [Concomitant]
     Active Substance: INSULIN ASPART
     Dosage: STARTED SINCE MORE THAN 3 MONTHS
  3. GLIFAGE [Concomitant]
     Active Substance: METFORMIN HYDROCHLORIDE
     Dosage: GLIFAGE XR: 500 MG
  4. TRADJENTA [Concomitant]
     Active Substance: LINAGLIPTIN
     Dosage: STRENGTH 5MG
  5. SOLOSTAR [Concomitant]
     Active Substance: DEVICE

REACTIONS (3)
  - Hypertension [Unknown]
  - Hyperglycaemia [Unknown]
  - Arrhythmia [Unknown]
